FAERS Safety Report 9532086 (Version 2)
Quarter: 2014Q4

REPORT INFORMATION
  Report Type: Spontaneous
  Country: US (occurrence: None)
  Receive Date: 20130916
  Receipt Date: 20141218
  Transmission Date: 20150529
  Serious: Yes (Hospitalization)
  Sender: FDA-Public Use
  Company Number: 1713747-2013-99948

PATIENT
  Age: 55 Year
  Sex: Female

DRUGS (24)
  1. DOCUSATE/COLACO [Concomitant]
  2. ASPRIN [Concomitant]
     Active Substance: ASPIRIN
  3. LASARTAN [Concomitant]
  4. GUAIFENESIN. [Concomitant]
     Active Substance: GUAIFENESIN
  5. CARVEDILOL. [Concomitant]
     Active Substance: CARVEDILOL
  6. CILOSTAZOL. [Concomitant]
     Active Substance: CILOSTAZOL
  7. DELFLEX [Suspect]
     Active Substance: CALCIUM CHLORIDE\DEXTROSE MONOHYDRATE\MAGNESIUM CHLORIDE\SODIUM CHLORIDE\SODIUM LACTATE
     Indication: PERITONEAL DIALYSIS
     Route: 033
  8. EPOGEN [Concomitant]
     Active Substance: ERYTHROPOIETIN
  9. LACTULOSE. [Concomitant]
     Active Substance: LACTULOSE
  10. PLETAL [Concomitant]
     Active Substance: CILOSTAZOL
  11. ZEMPLAR [Concomitant]
     Active Substance: PARICALCITOL
  12. LASIX [Concomitant]
     Active Substance: FUROSEMIDE
  13. LIPITOR [Concomitant]
     Active Substance: ATORVASTATIN CALCIUM
  14. POLYETHYLENE GLYCOL [Concomitant]
     Active Substance: POLYETHYLENE GLYCOLS
  15. MIRALAX [Concomitant]
     Active Substance: POLYETHYLENE GLYCOL 3350
  16. LIBERTY DIALYSIS CYCLER TUBING [Concomitant]
  17. INSULIN PROTAMINE/NOVOLOG 70/30 [Concomitant]
  18. METRONIDDAZOLE [Concomitant]
  19. CALCIUM ACETATE. [Concomitant]
     Active Substance: CALCIUM ACETATE
  20. OMEPRAZOLE. [Concomitant]
     Active Substance: OMEPRAZOLE
  21. LIBERTY DIALYSIS CYCLER [Concomitant]
  22. FAMOTIDINE. [Concomitant]
     Active Substance: FAMOTIDINE
  23. GABAPENTIN. [Concomitant]
     Active Substance: GABAPENTIN
  24. BISACODYL. [Concomitant]
     Active Substance: BISACODYL

REACTIONS (3)
  - Product quality issue [None]
  - Peritonitis [None]
  - Product colour issue [None]

NARRATIVE: CASE EVENT DATE: 20130820
